FAERS Safety Report 9424055 (Version 1)
Quarter: 2013Q3

REPORT INFORMATION
  Report Type: Spontaneous
  Country: US (occurrence: US)
  Receive Date: 20130729
  Receipt Date: 20130729
  Transmission Date: 20140515
  Serious: No
  Sender: FDA-Public Use
  Company Number: US-009507513-1307USA014323

PATIENT
  Age: 22 Year
  Sex: Female

DRUGS (4)
  1. ISENTRESS [Suspect]
     Indication: HIV INFECTION
     Dosage: UNK
     Route: 048
  2. EMTRICITABINE (+) TENOFOVIR DISOPROXIL FUMARATE [Suspect]
     Dosage: DAILY DOSE 1
     Route: 048
  3. ZIDOVUDINE [Suspect]
     Dosage: DAILY DOSE 114
     Route: 042
  4. ZIDOVUDINE [Suspect]
     Dosage: DAILY DOSE 57
     Route: 042

REACTIONS (2)
  - Exposure during pregnancy [Recovered/Resolved]
  - No adverse event [Unknown]
